FAERS Safety Report 5196847-7 (Version None)
Quarter: 2006Q4

REPORT INFORMATION
  Report Type: 
  Country: None (occurrence: None)
  Receive Date: 20061227
  Receipt Date: 20061214
  Transmission Date: 20070319
  Serious: Yes (Other)
  Sender: FDA-Public Use
  Company Number: 2006154050

PATIENT
  Age: 49 Year
  Sex: Male
  Weight: 99.7913 kg

DRUGS (6)
  1. CHANTIX [Suspect]
     Indication: SMOKING CESSATION THERAPY
     Dosage: 1 MG (1 MG, 1 IN 1 D)
     Dates: start: 20061206
  2. FISH OIL (FISH OIL) [Suspect]
     Indication: BLOOD CHOLESTEROL
     Dosage: 4000 MG (4000 MG, ONCE ONLY)
  3. KLONOPIN [Concomitant]
  4. RED YEAST RICE (RED YEAST RICE) [Concomitant]
  5. CINNAMON (CINNAMON) [Concomitant]
  6. SAW PALMETTO (SAW PALMETTO) [Concomitant]

REACTIONS (5)
  - CONSTIPATION [None]
  - DIARRHOEA [None]
  - HEADACHE [None]
  - ROAD TRAFFIC ACCIDENT [None]
  - SOMNOLENCE [None]
